FAERS Safety Report 17898454 (Version 2)
Quarter: 2020Q3

REPORT INFORMATION
  Report Type: Report from Study
  Country: None (occurrence: AU)
  Receive Date: 20200616
  Receipt Date: 20200706
  Transmission Date: 20201103
  Serious: Yes (Other)
  Sender: FDA-Public Use
  Company Number: AU-ABBVIE-20K-008-3438810-00

PATIENT
  Age: 84 Year
  Sex: Male

DRUGS (1)
  1. DUODOPA [Suspect]
     Active Substance: CARBIDOPA\LEVODOPA
     Indication: PARKINSON^S DISEASE
     Dosage: 16 HOURS
     Route: 050
     Dates: start: 20180522, end: 202006

REACTIONS (10)
  - Medical device site scab [Unknown]
  - Stoma site haemorrhage [Unknown]
  - Stoma site erythema [Not Recovered/Not Resolved]
  - Device occlusion [Unknown]
  - Intestinal obstruction [Unknown]
  - Incorrect route of product administration [Unknown]
  - Stoma site discharge [Not Recovered/Not Resolved]
  - Bowel movement irregularity [Unknown]
  - Anxiety [Unknown]
  - Constipation [Unknown]

NARRATIVE: CASE EVENT DATE: 202006
